FAERS Safety Report 8882317 (Version 2)
Quarter: 2012Q4

REPORT INFORMATION
  Report Type: 
  Country: JP (occurrence: JP)
  Receive Date: 20121102
  Receipt Date: 20121106
  Transmission Date: 20130627
  Serious: Yes (Hospitalization, Other)
  Sender: FDA-Public Use
  Company Number: JP-ROCHE-1149673

PATIENT
  Age: 58 Year
  Sex: Male

DRUGS (2)
  1. COPEGUS [Suspect]
     Indication: HEPATITIS C
     Dosage: Dosage is uncertain.
     Route: 048
  2. PEGINTERFERON ALFA-2B [Suspect]
     Indication: HEPATITIS C
     Dosage: Dosage is uncertain.
     Route: 058

REACTIONS (8)
  - Skin ulcer [Unknown]
  - Necrotising fasciitis [Recovered/Resolved]
  - Pyrexia [Recovering/Resolving]
  - Decreased appetite [Recovering/Resolving]
  - Erythema [Recovering/Resolving]
  - Injection site pruritus [Recovering/Resolving]
  - Erythema [Unknown]
  - Skin ulcer [Recovering/Resolving]
